FAERS Safety Report 9799852 (Version 1)
Quarter: 2014Q1

REPORT INFORMATION
  Report Type: Spontaneous
  Country: US (occurrence: US)
  Receive Date: 20140106
  Receipt Date: 20140106
  Transmission Date: 20141002
  Serious: Yes (Death)
  Sender: FDA-Public Use
  Company Number: US-GLAXOSMITHKLINE-A1055250A

PATIENT
  Age: 67 Year
  Sex: Male

DRUGS (1)
  1. VOTRIENT [Suspect]
     Indication: PRODUCT USED FOR UNKNOWN INDICATION
     Route: 065
     Dates: start: 20130225

REACTIONS (8)
  - Renal cancer metastatic [Fatal]
  - Metastases to lung [Unknown]
  - Metastases to central nervous system [Unknown]
  - Lethargy [Unknown]
  - Pain [Unknown]
  - Pleural effusion [Unknown]
  - Palliative care [Unknown]
  - Dyspnoea [Unknown]
